FAERS Safety Report 9413572 (Version 5)
Quarter: 2013Q3

REPORT INFORMATION
  Report Type: Spontaneous
  Country: US (occurrence: None)
  Receive Date: 20130614
  Receipt Date: 20130815
  Transmission Date: 20140515
  Serious: Yes (Hospitalization, Other)
  Sender: FDA-Public Use
  Company Number: ADR-2013-00962

PATIENT
  Age: 9 Year
  Sex: Male

DRUGS (1)
  1. LIORESAL INTRATHECAL (BACLOFEN INJECTION) 2000MCG/ML [Suspect]
     Indication: MUSCLE SPASTICITY

REACTIONS (11)
  - Underdose [None]
  - Drug withdrawal syndrome [None]
  - Muscle spasticity [None]
  - Pruritus [None]
  - Muscle twitching [None]
  - Medical device complication [None]
  - Agitation [None]
  - Device power source issue [None]
  - Implant site pruritus [None]
  - Muscle spasticity [None]
  - Depressed level of consciousness [None]
